FAERS Safety Report 18326631 (Version 3)
Quarter: 2020Q4

REPORT INFORMATION
  Report Type: Report from Study
  Country: None (occurrence: US)
  Receive Date: 20200930
  Receipt Date: 20201008
  Transmission Date: 20210113
  Serious: Yes (Hospitalization, Other)
  Sender: FDA-Public Use
  Company Number: US-ABBVIE-20K-163-3586141-00

PATIENT
  Sex: Male

DRUGS (2)
  1. IMBRUVICA [Suspect]
     Active Substance: IBRUTINIB
     Indication: CHRONIC LYMPHOCYTIC LEUKAEMIA (IN REMISSION)
     Route: 048
     Dates: start: 20180309
  2. IMBRUVICA [Suspect]
     Active Substance: IBRUTINIB
     Indication: CHRONIC LYMPHOCYTIC LEUKAEMIA (IN REMISSION)
     Route: 048
     Dates: start: 20181005

REACTIONS (11)
  - Acute kidney injury [Unknown]
  - Dysuria [Unknown]
  - Prostatic operation [Unknown]
  - Anaemia [Unknown]
  - Unevaluable event [Unknown]
  - Hypertension [Unknown]
  - Vomiting [Unknown]
  - Cardiac failure congestive [Unknown]
  - Oxygen saturation abnormal [Unknown]
  - Illness [Unknown]
  - Diarrhoea [Unknown]

NARRATIVE: CASE EVENT DATE: 2020
